FAERS Safety Report 9458799 (Version 1)
Quarter: 2013Q3

REPORT INFORMATION
  Report Type: Spontaneous
  Country: DK (occurrence: FR)
  Receive Date: 20130814
  Receipt Date: 20130814
  Transmission Date: 20140515
  Serious: Yes (Hospitalization)
  Sender: FDA-Public Use
  Company Number: FR-FRI-1000047744

PATIENT
  Age: 94 Year
  Sex: Female

DRUGS (7)
  1. CITALOPRAM [Suspect]
     Dosage: 1 DF
     Route: 048
     Dates: end: 20120725
  2. LOVENOX [Suspect]
     Indication: DEEP VEIN THROMBOSIS
     Dosage: 2 DF (12000 IU)
     Route: 058
     Dates: end: 20120725
  3. DOLIPRANE [Concomitant]
     Route: 048
     Dates: end: 20120725
  4. SERESTA [Concomitant]
     Dosage: 1 DF
     Route: 048
  5. TRIATEC [Concomitant]
     Dosage: 0.5 DF
     Route: 048
  6. PARIET [Concomitant]
     Dosage: 1 DF
     Route: 048
     Dates: end: 20120725
  7. LASILIX [Concomitant]
     Dosage: 2 DF
     Route: 048

REACTIONS (1)
  - Haemorrhagic stroke [Recovered/Resolved]
